FAERS Safety Report 8978042 (Version 2)
Quarter: 2012Q4

REPORT INFORMATION
  Report Type: Spontaneous
  Country: FR (occurrence: None)
  Receive Date: 20120820
  Receipt Date: 20120925
  Transmission Date: 20130627
  Serious: Yes (Other)
  Sender: FDA-Public Use
  Company Number: 218225

PATIENT
  Age: 27 Year
  Sex: Male

DRUGS (3)
  1. INNOHEP [Suspect]
     Indication: PROPHYLAXIS
     Dosage: preventive dose
     Route: 058
     Dates: end: 20120406
  2. INNOHEP [Suspect]
     Indication: PROPHYLAXIS
     Dosage: curative dose
     Dates: end: 20120407
  3. DAFALGAN (PARACETAMOL) [Concomitant]

REACTIONS (8)
  - Deep vein thrombosis [None]
  - Male sexual dysfunction [None]
  - Semen viscosity increased [None]
  - Spermatozoa abnormal [None]
  - Rash [None]
  - Scar [None]
  - Pollakiuria [None]
  - Hypersensitivity [None]
